FAERS Safety Report 25467328 (Version 1)
Quarter: 2025Q2

REPORT INFORMATION
  Report Type: Spontaneous
  Country: BR (occurrence: BR)
  Receive Date: 20250623
  Receipt Date: 20250623
  Transmission Date: 20250716
  Serious: Yes (Other)
  Sender: FRESENIUS KABI
  Company Number: BR-FreseniusKabi-FK202508358

PATIENT
  Age: 46 Year
  Sex: Female

DRUGS (2)
  1. IDACIO [Suspect]
     Active Substance: ADALIMUMAB-AACF
     Indication: Crohn^s disease
     Dosage: 50 MG/ML
     Route: 058
     Dates: start: 2025, end: 202505
  2. ADALIMUMAB [Suspect]
     Active Substance: ADALIMUMAB
     Indication: Crohn^s disease
     Dosage: 50 MG/ML
     Route: 058
     Dates: start: 201910, end: 202504

REACTIONS (9)
  - Candida infection [Recovering/Resolving]
  - Application site pain [Recovering/Resolving]
  - Application site bruise [Recovering/Resolving]
  - Flushing [Recovering/Resolving]
  - Abdominal pain upper [Recovering/Resolving]
  - Cyst [Recovering/Resolving]
  - Tachycardia [Recovering/Resolving]
  - Pain [Recovering/Resolving]
  - Gastrointestinal pain [Recovering/Resolving]

NARRATIVE: CASE EVENT DATE: 20250201
